FAERS Safety Report 5414619-2 (Version None)
Quarter: 2007Q3

REPORT INFORMATION
  Report Type: 
  Country: None (occurrence: None)
  Receive Date: 20070731
  Receipt Date: 20070403
  Transmission Date: 20080115
  Serious: No
  Sender: FDA-Public Use
  Company Number: 2006PV022474

PATIENT
  Age: 54 Year
  Sex: Female
  Weight: 73 kg

DRUGS (5)
  1. EXENATIDE(EXENATIDE) PEN, DISPOSABLE [Suspect]
     Indication: DIABETES MELLITUS
     Dosage: 10 UG, 2/D, SQ  5 UG, 2/D, SQ   10 UG, 2/D, SQ   10 UG, 2/D, SQ   5 UG, 2/D, SQ
     Route: 058
     Dates: start: 20060701, end: 20060701
  2. EXENATIDE(EXENATIDE) PEN, DISPOSABLE [Suspect]
     Indication: DIABETES MELLITUS
     Dosage: 10 UG, 2/D, SQ  5 UG, 2/D, SQ   10 UG, 2/D, SQ   10 UG, 2/D, SQ   5 UG, 2/D, SQ
     Route: 058
     Dates: start: 20060701
  3. EXENATIDE (EXENATIDE) PEN, DISPOSABLE [Suspect]
  4. METFORMIN HCL [Concomitant]
  5. NEXIUM [Concomitant]

REACTIONS (8)
  - ABDOMINAL DISTENSION [None]
  - BLOOD GLUCOSE INCREASED [None]
  - DECREASED APPETITE [None]
  - HEADACHE [None]
  - INJECTION SITE PAIN [None]
  - NAUSEA [None]
  - THERAPEUTIC RESPONSE UNEXPECTED [None]
  - WEIGHT DECREASED [None]
